FAERS Safety Report 7477300-4 (Version None)
Quarter: 2011Q2

REPORT INFORMATION
  Report Type: 
  Country: None (occurrence: None)
  Receive Date: 20110513
  Receipt Date: 20110502
  Transmission Date: 20111010
  Serious: No
  Sender: FDA-Public Use
  Company Number: US-BIOGENIDEC-2010BI025653

PATIENT
  Sex: Female

DRUGS (1)
  1. TYSABRI [Suspect]
     Indication: MULTIPLE SCLEROSIS
     Route: 042
     Dates: start: 20100202, end: 20110216

REACTIONS (7)
  - GAIT DISTURBANCE [None]
  - OSTEOPOROSIS [None]
  - BALANCE DISORDER [None]
  - SECONDARY PROGRESSIVE MULTIPLE SCLEROSIS [None]
  - DRUG INEFFECTIVE [None]
  - MOBILITY DECREASED [None]
  - MULTIPLE SCLEROSIS [None]
